FAERS Safety Report 10736019 (Version 2)
Quarter: 2015Q3

REPORT INFORMATION
  Report Type: Spontaneous
  Country: FR (occurrence: FR)
  Receive Date: 20150126
  Receipt Date: 20150720
  Transmission Date: 20151125
  Serious: Yes (Death, Hospitalization)
  Sender: FDA-Public Use
  Company Number: FR-BAYER-2015-009775

PATIENT
  Age: 71 Year
  Sex: Male

DRUGS (3)
  1. STIVARGA [Suspect]
     Active Substance: REGORAFENIB
     Indication: ADENOCARCINOMA OF COLON
     Dosage: UNK
     Route: 048
     Dates: start: 20141215, end: 20141218
  2. SERESTA [Concomitant]
     Active Substance: OXAZEPAM
     Dosage: 10 MG
  3. INNOHEP [Concomitant]
     Active Substance: TINZAPARIN SODIUM

REACTIONS (5)
  - Asthenia [Fatal]
  - Pyrexia [Fatal]
  - Hypotension [Fatal]
  - Hepatic infection [Fatal]
  - General physical health deterioration [Fatal]

NARRATIVE: CASE EVENT DATE: 20141219
